FAERS Safety Report 5130300-1 (Version None)
Quarter: 2006Q4

REPORT INFORMATION
  Report Type: 
  Country: None (occurrence: None)
  Receive Date: 20061019
  Receipt Date: 20061013
  Transmission Date: 20070319
  Serious: Yes (Disabling, Other)
  Sender: FDA-Public Use
  Company Number: JP-JNJFOC-20051004054

PATIENT
  Age: 79 Year
  Sex: Female

DRUGS (5)
  1. LEVOFLOXACIN [Suspect]
     Indication: BRONCHITIS
     Route: 048
     Dates: start: 20050714, end: 20050718
  2. SOLATEX [Concomitant]
     Indication: ARRHYTHMIA
     Route: 048
  3. ASPIRIN [Concomitant]
     Indication: CORONARY ARTERY DISEASE
     Route: 048
  4. NORVASC [Concomitant]
     Indication: HYPERTENSION
     Route: 048
  5. ADUMBRAN [Concomitant]
     Indication: SLEEP DISORDER
     Route: 048

REACTIONS (2)
  - AGEUSIA [None]
  - ANOSMIA [None]
